FAERS Safety Report 8258165-X (Version None)
Quarter: 2012Q2

REPORT INFORMATION
  Report Type: 
  Country: None (occurrence: None)
  Receive Date: 20120404
  Receipt Date: 20120329
  Transmission Date: 20120825
  Serious: No
  Sender: FDA-Public Use
  Company Number: PHHY2011DK098717

PATIENT
  Sex: Female
  Weight: 61 kg

DRUGS (3)
  1. TASIGNA [Suspect]
     Indication: CHRONIC MYELOID LEUKAEMIA
     Dosage: 300 MG, BID
     Route: 048
     Dates: start: 20110513
  2. TASIGNA [Suspect]
     Dosage: 300 MG, BID
     Route: 048
     Dates: start: 20110616, end: 20110624
  3. TASIGNA [Suspect]
     Dosage: DOSIS: 300 MG X 2, STYRKE: 150 MG
     Route: 048
     Dates: start: 20110513, end: 20110624

REACTIONS (2)
  - LABELLED DRUG-FOOD INTERACTION MEDICATION ERROR [None]
  - ALANINE AMINOTRANSFERASE INCREASED [None]
